FAERS Safety Report 6994389-7 (Version None)
Quarter: 2010Q3

REPORT INFORMATION
  Report Type: 
  Country: None (occurrence: None)
  Receive Date: 20100917
  Receipt Date: 20100906
  Transmission Date: 20110219
  Serious: Yes (Death)
  Sender: FDA-Public Use
  Company Number: NL-GENENTECH-306441

PATIENT
  Sex: Male
  Weight: 84 kg

DRUGS (11)
  1. RITUXIMAB [Suspect]
     Indication: DIFFUSE LARGE B-CELL LYMPHOMA
     Dosage: UNK
     Route: 042
     Dates: start: 20100903
  2. NEUPOGEN [Suspect]
     Indication: DIFFUSE LARGE B-CELL LYMPHOMA
     Dosage: UNK
     Route: 058
     Dates: start: 20100904
  3. VINCRISTINE [Suspect]
     Indication: DIFFUSE LARGE B-CELL LYMPHOMA
     Dosage: UNK
     Route: 042
     Dates: start: 20100903
  4. DOXORUBICIN HCL [Suspect]
     Indication: DIFFUSE LARGE B-CELL LYMPHOMA
     Dosage: UNK
     Route: 042
     Dates: start: 20100903
  5. CYCLOPHOSPHAMIDE [Suspect]
     Indication: DIFFUSE LARGE B-CELL LYMPHOMA
     Dosage: UNK
     Route: 042
     Dates: start: 20100903
  6. PREDNISONE [Suspect]
     Indication: DIFFUSE LARGE B-CELL LYMPHOMA
     Dosage: UNK
     Route: 048
     Dates: start: 20100903
  7. PREGABALINE [Concomitant]
     Indication: NEURALGIA
     Dosage: UNK
     Route: 048
     Dates: start: 20100825
  8. SIMVASTATIN [Concomitant]
     Indication: PRODUCT USED FOR UNKNOWN INDICATION
     Dosage: UNK
     Route: 048
  9. METOPROLOL [Concomitant]
     Indication: HYPERTENSION
     Dosage: UNK
  10. VALSARTAN [Concomitant]
     Indication: CEREBROVASCULAR ACCIDENT
     Dosage: UNK
     Route: 048
  11. ACETYLSALICYLIC ACID [Concomitant]
     Indication: CEREBROVASCULAR ACCIDENT
     Dosage: UNK
     Route: 048

REACTIONS (1)
  - SUDDEN DEATH [None]
